FAERS Safety Report 6031149-8 (Version None)
Quarter: 2008Q4

REPORT INFORMATION
  Report Type: 
  Country: None (occurrence: None)
  Receive Date: 20081222
  Receipt Date: 20080902
  Transmission Date: 20090506
  Serious: No
  Sender: FDA-Public Use
  Company Number: US-WYE-H05849808

PATIENT
  Sex: Female

DRUGS (8)
  1. PRISTIQ [Suspect]
     Indication: DEPRESSION
     Dosage: 50 MG 1X PER 1 DAY, ORAL
     Route: 048
     Dates: start: 20080811
  2. SYNTHROID [Concomitant]
  3. LISINOPRIL [Concomitant]
  4. PLAVIX [Concomitant]
  5. PRAVASTATIN [Concomitant]
  6. MIRTAZAPINE [Concomitant]
  7. MELATONIN (MELATONIN) [Concomitant]
  8. METOPROLOL TARTRATE [Concomitant]

REACTIONS (2)
  - HOT FLUSH [None]
  - NAUSEA [None]
